FAERS Safety Report 7269708-7 (Version None)
Quarter: 2011Q1

REPORT INFORMATION
  Report Type: 
  Country: None (occurrence: None)
  Receive Date: 20110202
  Receipt Date: 20110125
  Transmission Date: 20110831
  Serious: Yes (Disabling)
  Sender: FDA-Public Use
  Company Number: GB-PFIZER INC-GB-WYE-G05629210

PATIENT
  Age: 70 Year
  Sex: Male

DRUGS (4)
  1. GEMTUZUMAB OZOGAMICIN [Suspect]
     Indication: ACUTE MYELOID LEUKAEMIA
     Dosage: UNKNOWN
     Route: 042
     Dates: start: 20090915, end: 20091221
  2. CYTARABINE [Suspect]
     Dosage: UNKNOWN
     Route: 042
     Dates: start: 20090915, end: 20091221
  3. DAUNORUBICIN [Suspect]
     Dosage: THIRD CYCLE OFF PROTOCOL
     Route: 042
  4. DAUNORUBICIN [Suspect]
     Dosage: UNKNOWN
     Route: 042
     Dates: start: 20090915

REACTIONS (2)
  - TENOSYNOVITIS [None]
  - CARPAL TUNNEL SYNDROME [None]
